FAERS Safety Report 5040820-6 (Version None)
Quarter: 2006Q2

REPORT INFORMATION
  Report Type: 
  Country: None (occurrence: None)
  Receive Date: 20060629
  Receipt Date: 20060629
  Transmission Date: 20061013
  Serious: Yes (Other)
  Sender: FDA-Public Use
  Company Number: None

PATIENT
  Age: 48 Year
  Sex: Female
  Weight: 69.4003 kg

DRUGS (2)
  1. HUMIRA [Suspect]
     Indication: RHEUMATOID ARTHRITIS
     Dosage: 40MG Q2WEEKS SQ
     Route: 058
     Dates: start: 20040401, end: 20060101
  2. METHOTREXATE [Concomitant]

REACTIONS (1)
  - GASTRIC CANCER [None]
